FAERS Safety Report 18879813 (Version 3)
Quarter: 2021Q1

REPORT INFORMATION
  Report Type: Spontaneous
  Country: GB (occurrence: GB)
  Receive Date: 20210211
  Receipt Date: 20210320
  Transmission Date: 20210420
  Serious: Yes (Life-Threatening, Hospitalization, Disabling, Other)
  Sender: FDA-Public Use
  Company Number: GB-ACCORD-216789

PATIENT
  Age: 27 Year
  Sex: Female
  Weight: 63.5 kg

DRUGS (21)
  1. OMEPRAZOLE. [Interacting]
     Active Substance: OMEPRAZOLE
     Indication: DYSPEPSIA
     Route: 048
     Dates: start: 20110525
  2. PHOSPHORUS [Interacting]
     Active Substance: PHOSPHORUS
     Indication: PRODUCT USED FOR UNKNOWN INDICATION
  3. DIAZEPAM. [Interacting]
     Active Substance: DIAZEPAM
     Indication: MUSCLE SPASMS
     Dates: start: 20110725
  4. DOMPERIDONE [Interacting]
     Active Substance: DOMPERIDONE
     Indication: PRODUCT USED FOR UNKNOWN INDICATION
  5. CODEINE [Interacting]
     Active Substance: CODEINE
     Indication: ANALGESIC THERAPY
     Dosage: 24 ? EVERY HOUR
     Route: 048
     Dates: start: 2002, end: 2002
  6. PROCYCLIDINE [Interacting]
     Active Substance: PROCYCLIDINE
     Indication: EXTRAPYRAMIDAL DISORDER
     Route: 048
     Dates: start: 1995, end: 1996
  7. MIRTAZAPINE. [Interacting]
     Active Substance: MIRTAZAPINE
     Indication: DEPRESSION
     Route: 048
     Dates: start: 20100923, end: 20101108
  8. CODEINE [Interacting]
     Active Substance: CODEINE
     Indication: ANALGESIC THERAPY
     Dosage: 24 ? EVERY HOUR
     Route: 048
     Dates: start: 20110615, end: 20110723
  9. PAROXETINE. [Interacting]
     Active Substance: PAROXETINE
     Indication: POST-TRAUMATIC STRESS DISORDER
     Route: 048
     Dates: start: 19990801, end: 20110706
  10. TRAMADOL/TRAMADOL HYDROCHLORIDE [Interacting]
     Active Substance: TRAMADOL HYDROCHLORIDE
     Indication: ANALGESIC THERAPY
     Route: 048
     Dates: start: 20080722
  11. LORAZEPAM. [Interacting]
     Active Substance: LORAZEPAM
     Indication: SEDATION
     Route: 048
     Dates: start: 20110224, end: 20110410
  12. CLONAZEPAM. [Suspect]
     Active Substance: CLONAZEPAM
     Indication: SEDATION
     Route: 048
     Dates: start: 20110224, end: 20110410
  13. DIAZEPAM. [Interacting]
     Active Substance: DIAZEPAM
     Indication: MUSCLE SPASMS
     Dates: start: 20110725
  14. SEROXAT [Interacting]
     Active Substance: PAROXETINE HYDROCHLORIDE
     Indication: PRODUCT USED FOR UNKNOWN INDICATION
     Dosage: 20MG THREE TIMES PER DAY
     Route: 048
     Dates: start: 201105, end: 20110706
  15. SEROXAT [Interacting]
     Active Substance: PAROXETINE HYDROCHLORIDE
     Indication: PRODUCT USED FOR UNKNOWN INDICATION
     Dosage: 20MG THREE TIMES PER DAY
     Route: 048
     Dates: start: 19990801, end: 201105
  16. PROCYCLIDINE [Interacting]
     Active Substance: PROCYCLIDINE
     Indication: EXTRAPYRAMIDAL DISORDER
     Route: 048
     Dates: start: 20110503, end: 20110510
  17. AMITRIPTYLINE [Interacting]
     Active Substance: AMITRIPTYLINE
     Indication: MUSCLE SPASMS
     Dates: start: 20110810
  18. LORAZEPAM. [Interacting]
     Active Substance: LORAZEPAM
     Indication: SEDATION
     Route: 048
     Dates: start: 20110523, end: 20110627
  19. CODEINE [Interacting]
     Active Substance: CODEINE
     Indication: ANALGESIC THERAPY
     Dosage: 24 ? EVERY HOUR
     Route: 048
     Dates: start: 2008, end: 2008
  20. QUETIAPINE. [Interacting]
     Active Substance: QUETIAPINE
     Indication: PSYCHOTIC DISORDER
     Route: 048
     Dates: start: 20110224, end: 20110506
  21. TRAMADOL/TRAMADOL HYDROCHLORIDE [Interacting]
     Active Substance: TRAMADOL HYDROCHLORIDE
     Indication: ANALGESIC THERAPY
     Route: 048
     Dates: start: 1995, end: 1995

REACTIONS (53)
  - Exposure during pregnancy [Unknown]
  - Swollen tongue [Unknown]
  - Depression [Unknown]
  - Vision blurred [Unknown]
  - Nightmare [Unknown]
  - Dyskinesia [Unknown]
  - Eye pain [Unknown]
  - Blood sodium decreased [Unknown]
  - Depersonalisation/derealisation disorder [Not Recovered/Not Resolved]
  - Illness [Unknown]
  - Neuroleptic malignant syndrome [Unknown]
  - Feeling jittery [Unknown]
  - Paraesthesia [Unknown]
  - Mood swings [Unknown]
  - Mania [Unknown]
  - Swelling face [Unknown]
  - Hypoaesthesia [Not Recovered/Not Resolved]
  - Dissociation [Not Recovered/Not Resolved]
  - Skin discolouration [Not Recovered/Not Resolved]
  - Cyanosis [Unknown]
  - Hypoaesthesia oral [Unknown]
  - Paralysis [Unknown]
  - Disorientation [Not Recovered/Not Resolved]
  - Musculoskeletal stiffness [Unknown]
  - Balance disorder [Unknown]
  - Asthenia [Unknown]
  - Pruritus [Unknown]
  - Restless legs syndrome [Not Recovered/Not Resolved]
  - Drooling [Unknown]
  - Contusion [Unknown]
  - Hyperhidrosis [Unknown]
  - Tinnitus [Unknown]
  - Parosmia [Unknown]
  - Toxicity to various agents [Unknown]
  - Premature labour [Unknown]
  - Arthralgia [Unknown]
  - Cogwheel rigidity [Unknown]
  - Gastric pH decreased [Unknown]
  - H1N1 influenza [Unknown]
  - Schizophrenia [Unknown]
  - Aphasia [Not Recovered/Not Resolved]
  - Drug withdrawal syndrome [Unknown]
  - Sensory loss [Unknown]
  - Drug interaction [Unknown]
  - Menstrual disorder [Unknown]
  - Psychotic disorder [Unknown]
  - Urinary retention [Unknown]
  - Visual impairment [Unknown]
  - Serotonin syndrome [Not Recovered/Not Resolved]
  - Gait disturbance [Unknown]
  - Derealisation [Not Recovered/Not Resolved]
  - Mydriasis [Unknown]
  - Therapeutic product ineffective [Unknown]

NARRATIVE: CASE EVENT DATE: 2003
